FAERS Safety Report 7161636-0 (Version None)
Quarter: 2010Q4

REPORT INFORMATION
  Report Type: 
  Country: None (occurrence: None)
  Receive Date: 20101201
  Receipt Date: 20101116
  Transmission Date: 20110411
  Serious: Yes (Hospitalization, Other)
  Sender: FDA-Public Use
  Company Number: 2010-LIC-007

PATIENT
  Age: 38 Year
  Sex: Male

DRUGS (1)
  1. INTERFERON BETA-1B [Suspect]
     Indication: SECONDARY PROGRESSIVE MULTIPLE SCLEROSIS
     Dosage: 250 UG, QOD SUBCUTANEOUS
     Route: 058
     Dates: start: 20060401, end: 20070901

REACTIONS (16)
  - AGGRESSION [None]
  - ANXIETY [None]
  - DELUSIONAL PERCEPTION [None]
  - FEELING ABNORMAL [None]
  - HALLUCINATION, AUDITORY [None]
  - IDEAS OF REFERENCE [None]
  - INSOMNIA [None]
  - MENTAL DISORDER [None]
  - MOOD ALTERED [None]
  - OVERWEIGHT [None]
  - PSYCHOMOTOR HYPERACTIVITY [None]
  - PSYCHOTIC DISORDER [None]
  - RESTLESSNESS [None]
  - SOMNOLENCE [None]
  - SUSPICIOUSNESS [None]
  - THINKING ABNORMAL [None]
